FAERS Safety Report 9094462 (Version 1)
Quarter: 2013Q1

REPORT INFORMATION
  Report Type: Spontaneous
  Country: FI (occurrence: FI)
  Receive Date: 20130201
  Receipt Date: 20130201
  Transmission Date: 20140127
  Serious: Yes (Hospitalization)
  Sender: FDA-Public Use
  Company Number: FI-ELI_LILLY_AND_COMPANY-FI201301007663

PATIENT
  Sex: Female

DRUGS (6)
  1. FORSTEO [Suspect]
     Indication: OSTEOPOROSIS
     Dosage: 20 UG, QD
     Route: 058
     Dates: start: 20110725
  2. PREDNISON [Concomitant]
     Indication: RHEUMATIC DISORDER
     Dosage: 5 MG, QD
     Route: 048
  3. IMUREL [Concomitant]
     Indication: RHEUMATIC DISORDER
  4. NEXIUM [Concomitant]
     Indication: HYPERCHLORHYDRIA
     Dosage: 40 MG, UNK
  5. PANADOL [Concomitant]
     Indication: PAIN
     Dosage: 1 G, QD
  6. CALCIUM +VIT D [Concomitant]
     Indication: MEDICAL DIET

REACTIONS (1)
  - Thrombosis [Not Recovered/Not Resolved]
